FAERS Safety Report 12855319 (Version 3)
Quarter: 2016Q4

REPORT INFORMATION
  Report Type: Spontaneous
  Country: AU (occurrence: AU)
  Receive Date: 20161017
  Receipt Date: 20161024
  Transmission Date: 20170207
  Serious: Yes (Life-Threatening, Hospitalization, Disabling, Other)
  Sender: FDA-Public Use
  Company Number: PHHY2015AU001287

PATIENT
  Age: 42 Year
  Sex: Male
  Weight: 120 kg

DRUGS (1)
  1. VOLTAREN [Suspect]
     Active Substance: DICLOFENAC SODIUM
     Indication: PAIN IN EXTREMITY
     Dosage: 50 MG, QD
     Route: 048
     Dates: start: 20140331, end: 20140402

REACTIONS (10)
  - Haemorrhage [Not Recovered/Not Resolved]
  - Insomnia [Unknown]
  - Lacrimation increased [Unknown]
  - Gastric haemorrhage [Unknown]
  - Anaemia [Not Recovered/Not Resolved]
  - Quality of life decreased [Unknown]
  - Internal haemorrhage [Unknown]
  - Ear injury [Unknown]
  - Sudden hearing loss [Not Recovered/Not Resolved]
  - Tinnitus [Not Recovered/Not Resolved]

NARRATIVE: CASE EVENT DATE: 20140403
